FAERS Safety Report 8383139-8 (Version None)
Quarter: 2012Q1

REPORT INFORMATION
  Report Type: 
  Country: None (occurrence: None)
  Receive Date: 20120323
  Receipt Date: 20110510
  Transmission Date: 20120608
  Serious: Yes (Other)
  Sender: FDA-Public Use
  Company Number: 163-21880-11051276

PATIENT
  Age: 72 Year
  Sex: Female
  Weight: 64.8644 kg

DRUGS (5)
  1. LIPITOR [Concomitant]
  2. CALCIUM CARBONATE [Concomitant]
  3. OMEPRAZOLE [Concomitant]
  4. REVLIMID [Suspect]
     Indication: MULTIPLE MYELOMA
     Dosage: 25 MG, 1 IN 1 D, PO
     Route: 048
     Dates: start: 20090407
  5. WVI (ALL OTHER THERAPEUTIC PRODUCTS) [Concomitant]

REACTIONS (2)
  - NEUTROPHIL COUNT DECREASED [None]
  - WHITE BLOOD CELL COUNT DECREASED [None]
